FAERS Safety Report 5558139-3 (Version None)
Quarter: 2007Q4

REPORT INFORMATION
  Report Type: 
  Country: None (occurrence: None)
  Receive Date: 20071214
  Receipt Date: 20071204
  Transmission Date: 20080405
  Serious: Yes (Other)
  Sender: FDA-Public Use
  Company Number: US-PFIZER INC-2007064548

PATIENT
  Age: 52 Year
  Sex: Male
  Weight: 70.8 kg

DRUGS (3)
  1. TIKOSYN [Suspect]
  2. NEURONTIN [Interacting]
     Dates: end: 20070701
  3. NEURONTIN [Interacting]
     Dates: start: 20070701, end: 20070701

REACTIONS (5)
  - ASTHENIA [None]
  - CHEST DISCOMFORT [None]
  - DIZZINESS [None]
  - DRUG INTERACTION [None]
  - FACIAL PALSY [None]
